FAERS Safety Report 7569930-6 (Version None)
Quarter: 2011Q2

REPORT INFORMATION
  Report Type: 
  Country: None (occurrence: None)
  Receive Date: 20110624
  Receipt Date: 20110621
  Transmission Date: 20111010
  Serious: Yes (Life-Threatening, Hospitalization)
  Sender: FDA-Public Use
  Company Number: JP-B.I. PHARMACEUTICALS,INC./RIDGEFIELD-2011-BP-14282NB

PATIENT
  Sex: Female
  Weight: 48 kg

DRUGS (9)
  1. PRADAXA [Suspect]
     Indication: ATRIAL FIBRILLATION
     Dosage: 220 MG
     Route: 048
     Dates: start: 20110514, end: 20110523
  2. VERAPAMIL HCL [Suspect]
     Indication: BLOOD PRESSURE DECREASED
     Dosage: 80 MG
     Route: 048
     Dates: start: 20110519, end: 20110519
  3. HANP [Concomitant]
     Indication: CARDIAC FAILURE
     Dosage: 3000 MCG
     Route: 042
     Dates: start: 20110509, end: 20110514
  4. LASIX [Concomitant]
     Dosage: 20 MG
     Route: 048
     Dates: start: 20110509
  5. BISOPROLOL FUMARATE [Suspect]
     Indication: BLOOD PRESSURE DECREASED
     Dosage: 5 MG
     Route: 048
     Dates: start: 20110518, end: 20110519
  6. CANDESARTAN CILEXETIL [Suspect]
     Indication: BLOOD PRESSURE DECREASED
     Dosage: 8 MG
     Route: 048
     Dates: start: 20110509, end: 20110519
  7. CARVEDILOL [Concomitant]
     Dosage: 2.5 MG
     Route: 048
     Dates: start: 20110509, end: 20110517
  8. ALDACTONE [Concomitant]
     Dosage: 2.5 MG
     Route: 048
     Dates: start: 20110509
  9. DEPAS [Concomitant]
     Dosage: 0.5 MG
     Route: 048
     Dates: start: 20110513

REACTIONS (5)
  - CHEST DISCOMFORT [None]
  - VOMITING [None]
  - SHOCK [None]
  - BRADYCARDIA [None]
  - BLOOD PRESSURE DECREASED [None]
